FAERS Safety Report 17323541 (Version 1)
Quarter: 2020Q1

REPORT INFORMATION
  Report Type: Spontaneous
  Country: US (occurrence: US)
  Receive Date: 20200127
  Receipt Date: 20200127
  Transmission Date: 20200409
  Serious: No
  Sender: FDA-Public Use
  Company Number: US-BIOGEN-2019BI00820568

PATIENT
  Sex: Female

DRUGS (2)
  1. TECFIDERA [Suspect]
     Active Substance: DIMETHYL FUMARATE
     Indication: MULTIPLE SCLEROSIS
     Route: 048
     Dates: start: 2014, end: 2016
  2. TECFIDERA [Suspect]
     Active Substance: DIMETHYL FUMARATE
     Route: 065
     Dates: start: 20190626

REACTIONS (6)
  - Product dose omission [Unknown]
  - Expired product administered [Unknown]
  - Vision blurred [Unknown]
  - Multiple allergies [Unknown]
  - Eye swelling [Not Recovered/Not Resolved]
  - Diplopia [Unknown]
